FAERS Safety Report 5492686-8 (Version None)
Quarter: 2007Q4

REPORT INFORMATION
  Report Type: 
  Country: None (occurrence: None)
  Receive Date: 20071017
  Receipt Date: 20071006
  Transmission Date: 20080405
  Serious: Yes (Other)
  Sender: FDA-Public Use
  Company Number: CHNY2007BR03411

PATIENT
  Age: 2 Year
  Sex: Female

DRUGS (1)
  1. BENEFIBER (NCH) (GUAR GUM) POWDER [Suspect]
     Dosage: ORAL
     Route: 048
     Dates: start: 20071006

REACTIONS (6)
  - ABDOMINAL PAIN [None]
  - ACCIDENTAL DRUG INTAKE BY CHILD [None]
  - DIARRHOEA [None]
  - PYREXIA [None]
  - VOMITING [None]
  - WEIGHT DECREASED [None]
